FAERS Safety Report 18455843 (Version 3)
Quarter: 2020Q4

REPORT INFORMATION
  Report Type: Report from Study
  Country: IT (occurrence: IT)
  Receive Date: 20201102
  Receipt Date: 20201129
  Transmission Date: 20210114
  Serious: Yes (Hospitalization)
  Sender: FDA-Public Use
  Company Number: IT-ROCHE-2638807

PATIENT
  Age: 54 Year
  Sex: Male
  Weight: 86 kg

DRUGS (44)
  1. ETOPOSIDE. [Suspect]
     Active Substance: ETOPOSIDE
     Indication: SMALL CELL LUNG CANCER EXTENSIVE STAGE
     Dosage: ON 18/JUN/2020, AT 8.10, HE RECEIVED MOST RECENT DOSE OF ETOPOSIDE (200 MG).?DATE OF MOST RECENT DOS
     Route: 042
     Dates: start: 20200616
  2. CARBOPLATIN. [Suspect]
     Active Substance: CARBOPLATIN
     Indication: SMALL CELL LUNG CANCER EXTENSIVE STAGE
     Dosage: 5 MILLIGRAMS PER MILLILITER PER MINUTE?DATE OF MOST RECENT DOSE OF CARBOPLATIN PRIOR TO AE ONSET: 28
     Route: 042
     Dates: start: 20200616
  3. PALONOSETRON. [Concomitant]
     Active Substance: PALONOSETRON HYDROCHLORIDE
     Dates: start: 20200707, end: 20200707
  4. PARACETAMOLO [Concomitant]
     Active Substance: ACETAMINOPHEN
     Indication: PREMEDICATION
     Dates: start: 20200616, end: 20200618
  5. PARACETAMOLO [Concomitant]
     Active Substance: ACETAMINOPHEN
     Dates: start: 20200711, end: 20200715
  6. LORAZEPAM. [Concomitant]
     Active Substance: LORAZEPAM
     Dates: start: 20200616
  7. NETUPITANT;PALONOSETRON [Concomitant]
     Active Substance: NETUPITANT\PALONOSETRON HYDROCHLORIDE
     Dates: start: 20200819, end: 20200819
  8. ATEZOLIZUMAB. [Suspect]
     Active Substance: ATEZOLIZUMAB
     Indication: SMALL CELL LUNG CANCER EXTENSIVE STAGE
     Dosage: DATE OF MOST RECENT DOSE OF ATEZOLIZUMAB PRIOR TO AE ONSET: 28/JUL/2020 AT 8:48 AND 21/OCT/2020 AT 9
     Route: 041
     Dates: start: 20200616
  9. DEXAMETHASONE. [Concomitant]
     Active Substance: DEXAMETHASONE
     Dates: start: 20200930, end: 20201002
  10. PARACETAMOLO [Concomitant]
     Active Substance: ACETAMINOPHEN
     Dates: start: 20200801
  11. PARACETAMOLO [Concomitant]
     Active Substance: ACETAMINOPHEN
     Dates: start: 20200819, end: 20200819
  12. TRIMETON [Concomitant]
     Active Substance: CHLORPHENIRAMINE MALEATE
     Dates: start: 20200728, end: 20200728
  13. LANSOPRAZOLE. [Concomitant]
     Active Substance: LANSOPRAZOLE
     Dates: start: 20201020
  14. COLIREI [Concomitant]
  15. DEXAMETHASONE. [Concomitant]
     Active Substance: DEXAMETHASONE
     Dates: start: 20200819, end: 20200821
  16. PARACETAMOLO [Concomitant]
     Active Substance: ACETAMINOPHEN
     Dates: start: 20200823, end: 20200828
  17. CETIRIZINA [Concomitant]
     Active Substance: CETIRIZINE HYDROCHLORIDE
     Indication: RASH
     Dates: start: 20200706, end: 20200709
  18. NETUPITANT;PALONOSETRON [Concomitant]
     Active Substance: NETUPITANT\PALONOSETRON HYDROCHLORIDE
     Dates: start: 20200728, end: 20200728
  19. ONDANSETRON [Concomitant]
     Active Substance: ONDANSETRON
  20. DEXAMETHASONE. [Concomitant]
     Active Substance: DEXAMETHASONE
     Indication: PREMEDICATION
     Dates: start: 20200616, end: 20200618
  21. PARACETAMOLO [Concomitant]
     Active Substance: ACETAMINOPHEN
     Dates: start: 20200913, end: 20200919
  22. PARACETAMOLO [Concomitant]
     Active Substance: ACETAMINOPHEN
     Dates: start: 20200909, end: 20200909
  23. TRIMETON [Concomitant]
     Active Substance: CHLORPHENIRAMINE MALEATE
     Dates: start: 20200930, end: 20200930
  24. PLASIL [Concomitant]
     Active Substance: METOCLOPRAMIDE HYDROCHLORIDE
  25. MYCOSTATIN [Concomitant]
     Active Substance: NYSTATIN
  26. DEXAMETHASONE. [Concomitant]
     Active Substance: DEXAMETHASONE
  27. MANNITOL. [Concomitant]
     Active Substance: MANNITOL
  28. MIDAZOLAM. [Concomitant]
     Active Substance: MIDAZOLAM
  29. PALONOSETRON. [Concomitant]
     Active Substance: PALONOSETRON HYDROCHLORIDE
     Indication: PREMEDICATION
     Dates: start: 20200616, end: 20200616
  30. LORAZEPAM. [Concomitant]
     Active Substance: LORAZEPAM
     Dates: start: 20200706
  31. URBASON [Concomitant]
     Active Substance: METHYLPREDNISOLONE
  32. CLEXANE [Concomitant]
     Active Substance: ENOXAPARIN SODIUM
  33. DEXAMETHASONE. [Concomitant]
     Active Substance: DEXAMETHASONE
     Dates: start: 20200909, end: 20200911
  34. PARACETAMOLO [Concomitant]
     Active Substance: ACETAMINOPHEN
     Dates: start: 20200930, end: 20200930
  35. TRIMETON [Concomitant]
     Active Substance: CHLORPHENIRAMINE MALEATE
     Dates: start: 20200909, end: 20200909
  36. NETUPITANT;PALONOSETRON [Concomitant]
     Active Substance: NETUPITANT\PALONOSETRON HYDROCHLORIDE
     Dates: start: 20200909, end: 20200909
  37. FILGRASTIM [Concomitant]
     Active Substance: FILGRASTIM
  38. DEXAMETHASONE. [Concomitant]
     Active Substance: DEXAMETHASONE
     Dates: start: 20200707, end: 20200709
  39. TRIMETON [Concomitant]
     Active Substance: CHLORPHENIRAMINE MALEATE
     Dates: start: 20200819, end: 20200819
  40. PALONOSETRON. [Concomitant]
     Active Substance: PALONOSETRON HYDROCHLORIDE
     Dates: start: 20200728, end: 20200728
  41. DEXAMETHASONE. [Concomitant]
     Active Substance: DEXAMETHASONE
     Dates: start: 20200728, end: 20200730
  42. PARACETAMOLO [Concomitant]
     Active Substance: ACETAMINOPHEN
     Dates: start: 20200728, end: 20200728
  43. NETUPITANT;PALONOSETRON [Concomitant]
     Active Substance: NETUPITANT\PALONOSETRON HYDROCHLORIDE
     Dates: start: 20200616, end: 20200616
  44. TAVOR (LORAZEPAM) [Concomitant]
     Active Substance: LORAZEPAM

REACTIONS (2)
  - Pruritus [Not Recovered/Not Resolved]
  - Infusion related reaction [Recovered/Resolved]

NARRATIVE: CASE EVENT DATE: 20200707
